FAERS Safety Report 4913973-5 (Version None)
Quarter: 2006Q1

REPORT INFORMATION
  Report Type: 
  Country: None (occurrence: None)
  Receive Date: 20060216
  Receipt Date: 20060202
  Transmission Date: 20060701
  Serious: Yes (Hospitalization, Disabling)
  Sender: FDA-Public Use
  Company Number: US-MERCK-0602USA01550

PATIENT
  Age: 47 Year
  Sex: Female
  Weight: 95 kg

DRUGS (3)
  1. VIOXX [Suspect]
     Indication: ARTHRITIS
     Route: 048
     Dates: end: 20041001
  2. VIOXX [Suspect]
     Route: 048
     Dates: end: 20041001
  3. TYLENOL [Concomitant]
     Route: 065

REACTIONS (4)
  - BACK DISORDER [None]
  - CARDIAC DISORDER [None]
  - INTESTINAL OBSTRUCTION [None]
  - THROMBOSIS [None]
